FAERS Safety Report 7944224-5 (Version None)
Quarter: 2011Q4

REPORT INFORMATION
  Report Type: 
  Country: None (occurrence: None)
  Receive Date: 20111129
  Receipt Date: 20111115
  Transmission Date: 20120403
  Serious: Yes (Hospitalization)
  Sender: FDA-Public Use
  Company Number: FR-BIOGENIDEC-2011BI033799

PATIENT
  Age: 33 Year
  Sex: Female

DRUGS (2)
  1. CONCOMITANT TREATMENT NOS [Concomitant]
  2. AVONEX [Suspect]
     Indication: MULTIPLE SCLEROSIS
     Route: 030
     Dates: start: 20110603, end: 20110617

REACTIONS (2)
  - MEASLES [None]
  - MULTIPLE SCLEROSIS RELAPSE [None]
